FAERS Safety Report 23596012 (Version 1)
Quarter: 2024Q1

REPORT INFORMATION
  Report Type: Report from Study
  Country: US (occurrence: US)
  Receive Date: 20240305
  Receipt Date: 20240305
  Transmission Date: 20240410
  Serious: No
  Sender: FDA-Public Use
  Company Number: US-DECIPHERA PHARMACEUTICALS LLC-2024US000149

PATIENT
  Age: 45 Year
  Sex: Male

DRUGS (2)
  1. QINLOCK [Suspect]
     Active Substance: RIPRETINIB
     Indication: Gastrointestinal stromal tumour
     Dosage: 100 MILLIGRAM, (MONDAY TO FRIDAY) QD
     Route: 048
     Dates: start: 20230428
  2. QINLOCK [Suspect]
     Active Substance: RIPRETINIB
     Dosage: 50 MILLIGRAM, (SATURDAY AND SUNDAY) QD
     Route: 048

REACTIONS (8)
  - Muscle spasms [Unknown]
  - Hypertension [Unknown]
  - Red blood cell count increased [Unknown]
  - Blood testosterone decreased [Unknown]
  - Pain [Unknown]
  - Muscle atrophy [Unknown]
  - Inappropriate schedule of product administration [Unknown]
  - Product dose omission in error [Unknown]
